FAERS Safety Report 9628029 (Version 1)
Quarter: 2013Q4

REPORT INFORMATION
  Report Type: Spontaneous
  Country: US (occurrence: US)
  Receive Date: 20131016
  Receipt Date: 20131016
  Transmission Date: 20140711
  Serious: Yes (Hospitalization)
  Sender: FDA-Public Use
  Company Number: US-B.I. PHARMACEUTICALS,INC./RIDGEFIELD-2013-BI-32262BP

PATIENT
  Age: 88 Year
  Sex: Female
  Weight: 81 kg

DRUGS (13)
  1. COMBIVENT [Suspect]
     Indication: BRONCHITIS CHRONIC
     Dosage: STRENGTH: 18 MCG / 103 MCG; DAILY DOSE: 36 MCG / 206 MCG
     Route: 055
     Dates: start: 2003, end: 201309
  2. FUROSEMIDE [Concomitant]
     Indication: PULMONARY OEDEMA
     Dosage: 20 MG
     Route: 048
     Dates: start: 2012
  3. CLARITIN [Concomitant]
     Indication: RHINORRHOEA
     Dosage: 10 MG
     Route: 048
     Dates: start: 2009
  4. DULERA [Concomitant]
     Indication: BRONCHITIS CHRONIC
     Dosage: 4 PUF
     Route: 055
     Dates: start: 2013
  5. HYDRALAZINE [Concomitant]
     Indication: HYPERTENSION
     Dosage: 20 MG
     Route: 048
     Dates: start: 2011
  6. ADVAIR DISKUS [Concomitant]
     Indication: BRONCHITIS CHRONIC
     Dosage: 4 PUF
     Route: 055
     Dates: start: 2003
  7. SINGULAIR [Concomitant]
     Indication: ASTHMA
     Dosage: 10 MG
     Route: 048
     Dates: start: 1998
  8. ALBUTEROL NEBULIZER [Concomitant]
     Indication: BRONCHITIS CHRONIC
     Dosage: STRENGTH: 1 VIAL; DAILY DOSE: 4 VIALS
     Route: 055
     Dates: start: 2013
  9. DILTIAZEM [Concomitant]
     Indication: RIGHT VENTRICULAR FAILURE
     Dosage: 240 MG
     Route: 048
     Dates: start: 2011
  10. VITAMIN D [Concomitant]
     Indication: OSTEOPOROSIS
     Dosage: STRENGTH: 50,000 UNITS; DAILY DOSE: 50,000 UNITS
     Route: 048
     Dates: start: 2011
  11. PREDNISONE [Concomitant]
     Indication: BRONCHITIS CHRONIC
     Dosage: 10 MG
     Route: 048
     Dates: start: 2008
  12. OMEPRAZOLE [Concomitant]
     Indication: GASTROOESOPHAGEAL REFLUX DISEASE
     Dosage: 40 MG
     Route: 048
     Dates: start: 1998
  13. OMEPRAZOLE [Concomitant]
     Indication: HIATUS HERNIA

REACTIONS (2)
  - Pneumonia [Recovered/Resolved]
  - Pyrexia [Recovered/Resolved]
